FAERS Safety Report 9779524 (Version 1)
Quarter: 2013Q4

REPORT INFORMATION
  Report Type: Spontaneous
  Country: US (occurrence: US)
  Receive Date: 20131223
  Receipt Date: 20131223
  Transmission Date: 20140711
  Serious: No
  Sender: FDA-Public Use
  Company Number: US-PFIZER INC-2013364154

PATIENT
  Sex: Female

DRUGS (1)
  1. DEPO-PROVERA [Suspect]
     Indication: MENORRHAGIA
     Dosage: UNK
     Dates: start: 20131030

REACTIONS (1)
  - Drug ineffective for unapproved indication [Not Recovered/Not Resolved]
